FAERS Safety Report 25767658 (Version 1)
Quarter: 2025Q3

REPORT INFORMATION
  Report Type: Spontaneous
  Country: US (occurrence: US)
  Receive Date: 20250905
  Receipt Date: 20250905
  Transmission Date: 20251020
  Serious: Yes (Other)
  Sender: FERRING
  Company Number: US-FERRINGPH-2025FE05062

PATIENT

DRUGS (1)
  1. REBYOTA [Suspect]
     Active Substance: DONOR HUMAN STOOL
     Indication: Clostridium difficile infection
     Dosage: 150 ML, ONCE/SINGLE
     Route: 054
     Dates: start: 20250715, end: 20250715

REACTIONS (1)
  - Clostridium difficile infection [Unknown]

NARRATIVE: CASE EVENT DATE: 20250827
